FAERS Safety Report 8817341 (Version 1)
Quarter: 2012Q4

REPORT INFORMATION
  Report Type: 
  Country: GB (occurrence: GB)
  Receive Date: 20121004
  Receipt Date: 20121004
  Transmission Date: 20130627
  Serious: Yes (Other)
  Sender: FDA-Public Use
  Company Number: PHHY2012GB084758

PATIENT

DRUGS (6)
  1. DOXORUBICIN [Suspect]
     Dosage: 36.6 mg/m2
     Route: 042
  2. PREDNISONE [Suspect]
     Indication: INFLAMMATION
     Dosage: 200 mg
     Route: 065
  3. ETOPOSIDE [Suspect]
     Dosage: 184 mg
     Route: 065
  4. VINCRISTINE [Suspect]
  5. VELCADE [Suspect]
  6. RITUXIMAB [Suspect]
     Dosage: 664 mg

REACTIONS (2)
  - Neuropathy peripheral [Unknown]
  - Febrile neutropenia [Unknown]
